FAERS Safety Report 8538262-1 (Version None)
Quarter: 2012Q3

REPORT INFORMATION
  Report Type: 
  Country: None (occurrence: None)
  Receive Date: 20120726
  Receipt Date: 20120718
  Transmission Date: 20120928
  Serious: No
  Sender: FDA-Public Use
  Company Number: US-BIOGENIDEC-2012BI026649

PATIENT
  Age: 65 Year
  Sex: Female

DRUGS (3)
  1. TYSABRI [Suspect]
     Indication: MULTIPLE SCLEROSIS
     Route: 042
     Dates: start: 20090821, end: 20100527
  2. MULTI-VITAMINS [Concomitant]
     Indication: SUPPLEMENTATION THERAPY
  3. TYSABRI [Suspect]
     Route: 042
     Dates: start: 20120531

REACTIONS (6)
  - CYSTITIS [None]
  - POLLAKIURIA [None]
  - INCONTINENCE [None]
  - LIP SWELLING [None]
  - PARAESTHESIA ORAL [None]
  - ABDOMINAL PAIN UPPER [None]
